FAERS Safety Report 7579285-9 (Version None)
Quarter: 2011Q2

REPORT INFORMATION
  Report Type: 
  Country: None (occurrence: None)
  Receive Date: 20110628
  Receipt Date: 20110530
  Transmission Date: 20111010
  Serious: Yes (Other)
  Sender: FDA-Public Use
  Company Number: IT-BAYER-2011-051694

PATIENT
  Age: 57 Year
  Sex: Female

DRUGS (7)
  1. PANTOPRAZOLE [Concomitant]
  2. NAPROXEN SODIUM [Suspect]
     Indication: PRODUCT USED FOR UNKNOWN INDICATION
     Dosage: UNK
     Route: 065
     Dates: start: 20110509, end: 20110510
  3. ENALAPRIL MALEATE [Concomitant]
  4. ATORVASTATIN CALCIUM [Concomitant]
  5. ALFUZOSIN HCL [Concomitant]
  6. NORVASC [Concomitant]
  7. ASPIRIN [Concomitant]

REACTIONS (1)
  - HYPERSENSITIVITY [None]
